FAERS Safety Report 10498102 (Version 1)
Quarter: 2014Q4

REPORT INFORMATION
  Report Type: Report from Study
  Country: US (occurrence: US)
  Receive Date: 20141006
  Receipt Date: 20141006
  Transmission Date: 20150528
  Serious: Yes (Hospitalization)
  Sender: FDA-Public Use
  Company Number: US-SA-2014SA134971

PATIENT
  Age: 71 Year
  Sex: Female

DRUGS (9)
  1. LANTUS [Suspect]
     Active Substance: INSULIN GLARGINE
     Indication: DIABETES MELLITUS
     Route: 065
     Dates: start: 1990
  2. LANTUS [Suspect]
     Active Substance: INSULIN GLARGINE
     Indication: DIABETES MELLITUS
     Dosage: DOSE:75 UNIT(S)
     Route: 065
     Dates: end: 201408
  3. HUMALOG [Concomitant]
     Active Substance: INSULIN LISPRO
  4. LANTUS [Suspect]
     Active Substance: INSULIN GLARGINE
     Indication: DIABETES MELLITUS
     Dosage: DOSE:75 UNIT(S)
     Route: 065
     Dates: end: 201408
  5. ALL OTHER THERAPEUTIC PRODUCTS [Suspect]
     Active Substance: UNSPECIFIED INGREDIENT
     Route: 065
  6. POLYGALA SENEGA ROOT/DRAGON BONE/TORTOISE SHELL/GRASSLEAF SWEELFLAG RHIZOME/ROOSTER [Concomitant]
  7. REMICADE [Suspect]
     Active Substance: INFLIXIMAB
     Route: 065
  8. ALL OTHER THERAPEUTIC PRODUCTS [Suspect]
     Active Substance: UNSPECIFIED INGREDIENT
     Route: 048
  9. LEVEMIR [Concomitant]
     Active Substance: INSULIN DETEMIR

REACTIONS (6)
  - Infection [Not Recovered/Not Resolved]
  - Urticaria [Not Recovered/Not Resolved]
  - Psoriatic arthropathy [Not Recovered/Not Resolved]
  - Arthropathy [Not Recovered/Not Resolved]
  - Heart valve replacement [Unknown]
  - Renal disorder [Not Recovered/Not Resolved]

NARRATIVE: CASE EVENT DATE: 2009
